FAERS Safety Report 21822698 (Version 1)
Quarter: 2023Q1

REPORT INFORMATION
  Report Type: Spontaneous
  Country: US (occurrence: US)
  Receive Date: 20230105
  Receipt Date: 20230105
  Transmission Date: 20230418
  Serious: No
  Sender: FDA-Public Use
  Company Number: US-UNITED THERAPEUTICS-UNT-2022-032622

PATIENT
  Age: 58 Year
  Sex: Female

DRUGS (6)
  1. ORENITRAM [Suspect]
     Active Substance: TREPROSTINIL
     Indication: Pulmonary arterial hypertension
     Dosage: 5 MG, TID
     Route: 048
  2. ORENITRAM [Suspect]
     Active Substance: TREPROSTINIL
     Dosage: UNK
     Route: 048
     Dates: start: 202103
  3. ORENITRAM [Suspect]
     Active Substance: TREPROSTINIL
     Indication: Pulmonary arterial hypertension
     Dosage: UNK
     Route: 048
  4. ZITHROMAX [Suspect]
     Active Substance: AZITHROMYCIN DIHYDRATE
     Indication: Respiratory tract congestion
     Dosage: UNK
     Route: 065
     Dates: start: 202212, end: 20221230
  5. PREDNISONE [Suspect]
     Active Substance: PREDNISONE
     Indication: Respiratory tract congestion
     Dosage: UNK
     Route: 065
     Dates: start: 202212, end: 20221230
  6. BENZONATATE [Suspect]
     Active Substance: BENZONATATE
     Indication: Respiratory tract congestion
     Dosage: UNK
     Route: 065
     Dates: start: 202212, end: 20221230

REACTIONS (2)
  - Respiratory tract congestion [Not Recovered/Not Resolved]
  - Therapy non-responder [Unknown]

NARRATIVE: CASE EVENT DATE: 20221201
